FAERS Safety Report 5123065-0 (Version None)
Quarter: 2006Q4

REPORT INFORMATION
  Report Type: 
  Country: None (occurrence: None)
  Receive Date: 20061004
  Receipt Date: 20061004
  Transmission Date: 20070319
  Serious: Yes (Other)
  Sender: FDA-Public Use
  Company Number: None

PATIENT
  Sex: Male

DRUGS (2)
  1. ARMOUR THYROID [Suspect]
     Indication: BASEDOW'S DISEASE
     Dosage: 90 MG
  2. ARMOUR THYROID [Suspect]
     Indication: HYPOTHYROIDISM
     Dosage: 90 MG

REACTIONS (12)
  - ARTHRALGIA [None]
  - CHEST PAIN [None]
  - DRUG PRESCRIBING ERROR [None]
  - FEELING ABNORMAL [None]
  - HEADACHE [None]
  - MOOD SWINGS [None]
  - MUSCULOSKELETAL STIFFNESS [None]
  - PAIN [None]
  - PAIN IN EXTREMITY [None]
  - PALPITATIONS [None]
  - TREMOR [None]
  - WRONG TECHNIQUE IN DRUG USAGE PROCESS [None]
